FAERS Safety Report 19509971 (Version 1)
Quarter: 2021Q3

REPORT INFORMATION
  Report Type: Spontaneous
  Country: US (occurrence: US)
  Receive Date: 20210708
  Receipt Date: 20210708
  Transmission Date: 20211014
  Serious: No
  Sender: FDA-Public Use
  Company Number: US-INTRA-CELLULAR THERAPIES, INC.-2021ICT00163

PATIENT
  Age: 41 Year
  Sex: Male
  Weight: 83.9 kg

DRUGS (7)
  1. INVEGA [Concomitant]
     Active Substance: PALIPERIDONE
     Dosage: UNK
  2. KLONOPIN [Concomitant]
     Active Substance: CLONAZEPAM
  3. CAPLYTA [Suspect]
     Active Substance: LUMATEPERONE
     Indication: SCHIZOPHRENIA
     Dosage: 42 MG, 1X/DAY
     Route: 048
     Dates: start: 20210323
  4. CAPLYTA [Suspect]
     Active Substance: LUMATEPERONE
     Indication: MANIA
  5. UNSPECIFIED MEDICATIONS [Concomitant]
     Active Substance: UNSPECIFIED INGREDIENT
  6. CAPLYTA [Suspect]
     Active Substance: LUMATEPERONE
     Indication: PSYCHOTIC DISORDER
  7. CAPLYTA [Suspect]
     Active Substance: LUMATEPERONE
     Indication: ANGER

REACTIONS (6)
  - Somatic symptom disorder [Not Recovered/Not Resolved]
  - Depressed mood [Not Recovered/Not Resolved]
  - Headache [Unknown]
  - Chills [Recovered/Resolved]
  - Mental impairment [Not Recovered/Not Resolved]
  - Dizziness [Not Recovered/Not Resolved]

NARRATIVE: CASE EVENT DATE: 20210323
